FAERS Safety Report 16286780 (Version 1)
Quarter: 2019Q2

REPORT INFORMATION
  Report Type: Report from Study
  Country: SV (occurrence: SV)
  Receive Date: 20190508
  Receipt Date: 20190508
  Transmission Date: 20190711
  Serious: Yes (Other)
  Sender: FDA-Public Use
  Company Number: SV-SA-2019SA125990

PATIENT
  Age: 78 Year
  Sex: Female

DRUGS (2)
  1. IRBESARTAN. [Suspect]
     Active Substance: IRBESARTAN
     Indication: HYPERTENSION
     Dosage: 1 DF (300 MG), QD
     Route: 048
     Dates: start: 2017, end: 201901
  2. IRBESARTAN. [Suspect]
     Active Substance: IRBESARTAN
     Dosage: 1 DF (300 MG), QD

REACTIONS (3)
  - Cholecystectomy [Unknown]
  - Hip fracture [Recovered/Resolved with Sequelae]
  - Gait disturbance [Recovered/Resolved with Sequelae]

NARRATIVE: CASE EVENT DATE: 201801
